FAERS Safety Report 12208197 (Version 2)
Quarter: 2016Q2

REPORT INFORMATION
  Report Type: Spontaneous
  Country: HU (occurrence: HU)
  Receive Date: 20160324
  Receipt Date: 20160421
  Transmission Date: 20160815
  Serious: Yes (Other)
  Sender: FDA-Public Use
  Company Number: HU-TEVA-644733ISR

PATIENT
  Age: 54 Year
  Sex: Female

DRUGS (2)
  1. GEMCITABINE [Suspect]
     Active Substance: GEMCITABINE\GEMCITABINE HYDROCHLORIDE
     Indication: RENAL CANCER
     Dosage: 6 CYCLES AND HALF A YEAR LATER 2 CYCLES
  2. CISPLATIN. [Suspect]
     Active Substance: CISPLATIN
     Indication: RENAL CANCER
     Dosage: 6 CYCLES AND HALF A YEAR LATER 2 CYCLES

REACTIONS (1)
  - Deep vein thrombosis [Recovered/Resolved]
